FAERS Safety Report 17141764 (Version 1)
Quarter: 2019Q4

REPORT INFORMATION
  Report Type: Spontaneous
  Country: TR (occurrence: TR)
  Receive Date: 20191211
  Receipt Date: 20191211
  Transmission Date: 20200122
  Serious: Yes (Other)
  Sender: FDA-Public Use
  Company Number: TR-ASTELLAS-2019US048770

PATIENT
  Age: 73 Year
  Sex: Male

DRUGS (2)
  1. ZOLEDRONIC ACID. [Suspect]
     Active Substance: ZOLEDRONIC ACID
     Indication: HORMONE-REFRACTORY PROSTATE CANCER
     Dosage: UNK UNK, UNKNOWN FREQ.
     Route: 065
     Dates: start: 201803
  2. XTANDI [Suspect]
     Active Substance: ENZALUTAMIDE
     Indication: HORMONE-REFRACTORY PROSTATE CANCER
     Route: 048
     Dates: start: 201803

REACTIONS (5)
  - Cognitive disorder [Unknown]
  - Osteonecrosis of jaw [Unknown]
  - Asthenia [Unknown]
  - Malignant neoplasm progression [Unknown]
  - Prostatic specific antigen increased [Unknown]
